FAERS Safety Report 7934844-6 (Version None)
Quarter: 2011Q4

REPORT INFORMATION
  Report Type: 
  Country: None (occurrence: None)
  Receive Date: 20111122
  Receipt Date: 20111118
  Transmission Date: 20120403
  Serious: Yes (Hospitalization)
  Sender: FDA-Public Use
  Company Number: FR-B.I. PHARMACEUTICALS,INC./RIDGEFIELD-2011-FF-00915FF

PATIENT
  Sex: Male
  Weight: 86 kg

DRUGS (4)
  1. PRAMIPEXOLE DIHYDROCHLORIDE [Suspect]
     Dosage: 2.1 MG
     Route: 048
     Dates: start: 20101001
  2. PRAMIPEXOLE DIHYDROCHLORIDE [Suspect]
     Indication: PARKINSON'S DISEASE
     Dosage: 1.08 MG
     Route: 048
     Dates: start: 20060101, end: 20101001
  3. BISOPROLOL FUMARATE [Concomitant]
  4. ASPIRIN [Concomitant]

REACTIONS (4)
  - ABNORMAL BEHAVIOUR [None]
  - JEALOUS DELUSION [None]
  - HYPERSEXUALITY [None]
  - COMPULSIVE SEXUAL BEHAVIOUR [None]
